FAERS Safety Report 4734087-3 (Version None)
Quarter: 2005Q3

REPORT INFORMATION
  Report Type: 
  Country: None (occurrence: None)
  Receive Date: 20050803
  Receipt Date: 20050803
  Transmission Date: 20060218
  Serious: Yes (Death)
  Sender: FDA-Public Use
  Company Number: None

PATIENT
  Age: 70 Year
  Sex: Male
  Weight: 97.0698 kg

DRUGS (2)
  1. ZYVOX [Suspect]
     Indication: BACTERAEMIA
     Dosage: 600 BID ORAL
     Route: 048
     Dates: start: 20050511, end: 20050520
  2. ZYVOX [Suspect]
     Indication: PATHOGEN RESISTANCE
     Dosage: 600 BID ORAL
     Route: 048
     Dates: start: 20050511, end: 20050520

REACTIONS (11)
  - BACTERAEMIA [None]
  - CANDIDIASIS [None]
  - CANDIDURIA [None]
  - CENTRAL LINE INFECTION [None]
  - DRUG ERUPTION [None]
  - EOSINOPHIL COUNT INCREASED [None]
  - ESCHERICHIA INFECTION [None]
  - RENAL FAILURE ACUTE [None]
  - STEVENS-JOHNSON SYNDROME [None]
  - THROMBOCYTOPENIA [None]
  - URINARY TRACT INFECTION [None]
